FAERS Safety Report 23739215 (Version 2)
Quarter: 2024Q2

REPORT INFORMATION
  Report Type: Report from Study
  Country: GB (occurrence: GB)
  Receive Date: 20240413
  Receipt Date: 20240506
  Transmission Date: 20240715
  Serious: Yes (Life-Threatening)
  Sender: FDA-Public Use
  Company Number: None

PATIENT
  Age: 62 Year
  Sex: Female
  Weight: 63 kg

DRUGS (3)
  1. AMITRIPTYLINE [Suspect]
     Active Substance: AMITRIPTYLINE
     Indication: Fibromyalgia
     Dosage: 25MG MANE AND 75MG NOCTE
     Route: 065
  2. PREGABALIN [Suspect]
     Active Substance: PREGABALIN
     Indication: Adverse drug reaction
     Route: 065
     Dates: start: 20151023
  3. MORPHINE [Suspect]
     Active Substance: MORPHINE
     Indication: Fibromyalgia
     Dosage: 40MG BD
     Route: 065

REACTIONS (1)
  - Respiratory depression [Not Recovered/Not Resolved]
